FAERS Safety Report 9647957 (Version 1)
Quarter: 2013Q4

REPORT INFORMATION
  Report Type: Spontaneous
  Country: US (occurrence: US)
  Receive Date: 20131028
  Receipt Date: 20131028
  Transmission Date: 20140711
  Serious: No
  Sender: FDA-Public Use
  Company Number: US-PFIZER INC-2013304659

PATIENT
  Age: 42 Year
  Sex: Female
  Weight: 72.56 kg

DRUGS (3)
  1. XELJANZ [Suspect]
     Indication: RHEUMATOID ARTHRITIS
     Dosage: 5 MG, 2X/DAY
     Dates: start: 20130927, end: 20130930
  2. XELJANZ [Suspect]
     Dosage: 5MG DAILY
     Dates: start: 20131001, end: 201310
  3. PREDNISONE [Concomitant]
     Dosage: 15MG DAILY

REACTIONS (2)
  - Headache [Unknown]
  - Diarrhoea [Unknown]
